FAERS Safety Report 6234434-X (Version None)
Quarter: 2009Q2

REPORT INFORMATION
  Report Type: 
  Country: None (occurrence: None)
  Receive Date: 20090618
  Receipt Date: 20090612
  Transmission Date: 20091009
  Serious: Yes (Death)
  Sender: FDA-Public Use
  Company Number: AU-ROCHE-637770

PATIENT
  Sex: Male
  Weight: 72 kg

DRUGS (1)
  1. ROACCUTANE [Suspect]
     Indication: DRUG USE FOR UNKNOWN INDICATION
     Route: 065
     Dates: start: 20080801, end: 20090323

REACTIONS (3)
  - COMPLETED SUICIDE [None]
  - DEPRESSION [None]
  - SUICIDAL IDEATION [None]
